FAERS Safety Report 5261065-0 (Version None)
Quarter: 2007Q1

REPORT INFORMATION
  Report Type: 
  Country: None (occurrence: None)
  Receive Date: 20070309
  Receipt Date: 20070228
  Transmission Date: 20070707
  Serious: Yes (Death, Life-Threatening, Hospitalization)
  Sender: FDA-Public Use
  Company Number: FR-PFIZER INC-2006029505

PATIENT
  Sex: Male
  Weight: 69.5 kg

DRUGS (10)
  1. SU-011,248 [Suspect]
     Indication: HEPATIC NEOPLASM MALIGNANT
     Route: 048
     Dates: start: 20060217, end: 20060224
  2. LACTULOSE [Concomitant]
     Route: 048
  3. GINKOR FORT [Concomitant]
     Route: 048
  4. ALDACTONE [Concomitant]
     Route: 048
  5. METFORMIN HCL [Concomitant]
     Route: 048
  6. ZOCOR [Concomitant]
     Route: 048
  7. XATRAL [Concomitant]
     Route: 048
  8. TRASICOR [Concomitant]
     Route: 048
  9. DIFFU K [Concomitant]
     Route: 048
  10. PERMIXON [Concomitant]
     Route: 048

REACTIONS (5)
  - APHASIA [None]
  - BALANCE DISORDER [None]
  - HEPATIC ENCEPHALOPATHY [None]
  - NEUROLOGICAL SYMPTOM [None]
  - SOMNOLENCE [None]
